FAERS Safety Report 6664548-1 (Version None)
Quarter: 2010Q2

REPORT INFORMATION
  Report Type: 
  Country: None (occurrence: None)
  Receive Date: 20100401
  Receipt Date: 20100323
  Transmission Date: 20101027
  Serious: Yes (Hospitalization)
  Sender: FDA-Public Use
  Company Number: US-ASTRAZENECA-2010SE05153

PATIENT
  Age: 830 Month
  Sex: Male
  Weight: 67.1 kg

DRUGS (9)
  1. SEROQUEL [Suspect]
     Indication: BIPOLAR I DISORDER
     Route: 048
     Dates: start: 20081222, end: 20081224
  2. SEROQUEL [Suspect]
     Indication: INSOMNIA
     Route: 048
     Dates: start: 20081222, end: 20081224
  3. COZAAR [Concomitant]
  4. LEBATOL [Concomitant]
  5. DYNCIRC [Concomitant]
  6. SYNTHROID [Concomitant]
  7. LIPITOR [Concomitant]
  8. LUMIGAN [Concomitant]
  9. CARBANZAMINE [Concomitant]

REACTIONS (7)
  - ANGER [None]
  - ANXIETY [None]
  - DEPRESSION [None]
  - DRUG INEFFECTIVE [None]
  - INSOMNIA [None]
  - MUSCLE TWITCHING [None]
  - PHYSICAL ASSAULT [None]
